FAERS Safety Report 4873499-4 (Version None)
Quarter: 2005Q4

REPORT INFORMATION
  Report Type: 
  Country: None (occurrence: None)
  Receive Date: 20051201
  Receipt Date: 20050822
  Transmission Date: 20060501
  Serious: No
  Sender: FDA-Public Use
  Company Number: 2005PV001415

PATIENT
  Age: 59 Year
  Sex: Male

DRUGS (17)
  1. BYETTA [Suspect]
     Indication: DIABETES MELLITUS NON-INSULIN-DEPENDENT
     Dosage: SEE IMAGE
     Route: 058
     Dates: start: 20050819, end: 20050916
  2. BYETTA [Suspect]
     Indication: DIABETES MELLITUS NON-INSULIN-DEPENDENT
     Dosage: SEE IMAGE
     Route: 058
     Dates: start: 20050917
  3. PREVACID [Concomitant]
  4. ZOCOR [Concomitant]
  5. COZAAR [Concomitant]
  6. VITAMIN D [Concomitant]
  7. FLONASE [Concomitant]
  8. IPRATROPIUM BROMIDE [Concomitant]
  9. LEXAPRO [Concomitant]
  10. CLONAZEPAM [Concomitant]
  11. RESTASIS [Concomitant]
  12. ASPIRIN [Concomitant]
  13. METFORMIN [Concomitant]
  14. AVANDIA [Concomitant]
  15. GLIPIZIDE [Concomitant]
  16. METFORMIN [Concomitant]
  17. AVANDIA [Concomitant]

REACTIONS (4)
  - BLOOD GLUCOSE INCREASED [None]
  - FEELING JITTERY [None]
  - NAUSEA [None]
  - WEIGHT DECREASED [None]
